FAERS Safety Report 19226514 (Version 2)
Quarter: 2021Q3

REPORT INFORMATION
  Report Type: Report from Study
  Country: US (occurrence: US)
  Receive Date: 20210506
  Receipt Date: 20210806
  Transmission Date: 20211014
  Serious: No
  Sender: FDA-Public Use
  Company Number: US-AURINIA PHARMACEUTICALS INC.-AUR-000055

PATIENT
  Age: 54 Year
  Sex: Female

DRUGS (3)
  1. LUPKYNIS [Suspect]
     Active Substance: VOCLOSPORIN
     Indication: LUPUS NEPHRITIS
     Dosage: 23.7 MILLIGRAM, BID
     Route: 048
     Dates: start: 20210331, end: 20210406
  2. LUPKYNIS [Suspect]
     Active Substance: VOCLOSPORIN
     Dosage: 15.8 MILLIGRAM, BID
     Route: 048
     Dates: start: 20210406, end: 20210425
  3. LUPKYNIS [Suspect]
     Active Substance: VOCLOSPORIN
     Dosage: UNK
     Dates: end: 20210510

REACTIONS (6)
  - Poor peripheral circulation [Not Recovered/Not Resolved]
  - Headache [Recovered/Resolved]
  - Diarrhoea [Recovering/Resolving]
  - Alopecia [Recovered/Resolved]
  - Tremor [Not Recovered/Not Resolved]
  - Stomatitis [Not Recovered/Not Resolved]

NARRATIVE: CASE EVENT DATE: 20210402
